FAERS Safety Report 9735430 (Version 2)
Quarter: 2015Q3

REPORT INFORMATION
  Report Type: Spontaneous
  Country: US (occurrence: US)
  Receive Date: 20131206
  Receipt Date: 20150804
  Transmission Date: 20151125
  Serious: Yes (Hospitalization)
  Sender: FDA-Public Use
  Company Number: US-GILEAD-2009-0022792

PATIENT
  Age: 47 Year
  Sex: Male
  Weight: 92.08 kg

DRUGS (25)
  1. ESTRADIOL VALERATE. [Concomitant]
     Active Substance: ESTRADIOL VALERATE
  2. LANTUS [Concomitant]
     Active Substance: INSULIN GLARGINE
  3. PROVIGIL [Concomitant]
     Active Substance: MODAFINIL
  4. METOPROLOL [Concomitant]
     Active Substance: METOPROLOL
  5. PROTONIX [Concomitant]
     Active Substance: PANTOPRAZOLE SODIUM
  6. VITAMIN B12 [Concomitant]
     Active Substance: CYANOCOBALAMIN
  7. VIREAD [Concomitant]
     Active Substance: TENOFOVIR DISOPROXIL FUMARATE
  8. HIDEAWAY OXYGEN SYSTEM [Concomitant]
  9. NOVOLOG [Concomitant]
     Active Substance: INSULIN ASPART
  10. TESTOSTERONE. [Concomitant]
     Active Substance: TESTOSTERONE
  11. POTASSIUM CHLORIDE. [Concomitant]
     Active Substance: POTASSIUM CHLORIDE
  12. CYMBALTA [Concomitant]
     Active Substance: DULOXETINE HYDROCHLORIDE
  13. LEVOXYL [Concomitant]
     Active Substance: LEVOTHYROXINE SODIUM
  14. COUMADIN [Concomitant]
     Active Substance: WARFARIN SODIUM
  15. DEMADEX [Concomitant]
     Active Substance: TORSEMIDE
  16. REVATIO [Concomitant]
     Active Substance: SILDENAFIL CITRATE
  17. VITAMIN C [Concomitant]
     Active Substance: ASCORBIC ACID
  18. TRICOR [Concomitant]
     Active Substance: FENOFIBRATE
  19. NEURONTIN [Concomitant]
     Active Substance: GABAPENTIN
  20. OXYCONTIN [Concomitant]
     Active Substance: OXYCODONE HYDROCHLORIDE
  21. SELZENTRY [Concomitant]
     Active Substance: MARAVIROC
  22. DILTIAZEM [Concomitant]
     Active Substance: DILTIAZEM
  23. LETAIRIS [Suspect]
     Active Substance: AMBRISENTAN
     Indication: PULMONARY ARTERIAL HYPERTENSION
     Route: 048
     Dates: start: 20090615
  24. ZIAGEN [Concomitant]
     Active Substance: ABACAVIR SULFATE
  25. LORTAB [Concomitant]
     Active Substance: ACETAMINOPHEN\HYDROCODONE BITARTRATE

REACTIONS (2)
  - Fluid retention [Unknown]
  - Peripheral swelling [Unknown]
